FAERS Safety Report 9359099 (Version 3)
Quarter: 2013Q4

REPORT INFORMATION
  Report Type: Spontaneous
  Country: US (occurrence: US)
  Receive Date: 20130620
  Receipt Date: 20131024
  Transmission Date: 20140711
  Serious: No
  Sender: FDA-Public Use
  Company Number: US-009507513-1306USA008419

PATIENT
  Age: 41 Year
  Sex: Female

DRUGS (7)
  1. EMEND [Suspect]
     Indication: PREMEDICATION
     Dosage: 80 MG, QAM FOR 2 DAYS
  2. EMEND [Interacting]
     Dosage: 125 MG, UNK
  3. IFOSFAMIDE [Interacting]
     Indication: CHEMOTHERAPY
     Dosage: 1.5 G/M2, OVER 90 MINUTES
  4. CISPLATIN [Concomitant]
     Indication: CHEMOTHERAPY
     Dosage: 20 MG/M2, OVER 90 MINUTES
  5. MESNA [Concomitant]
     Dosage: DAYS 1-4
  6. DEXAMETHASONE [Concomitant]
     Indication: PREMEDICATION
     Dosage: 8 MG, QAM FOR 4 DAYS
  7. DEXAMETHASONE [Concomitant]
     Dosage: 10 MG, UNK

REACTIONS (5)
  - Mental status changes [Recovered/Resolved]
  - Hallucination, visual [Recovered/Resolved]
  - Hallucination, auditory [Recovered/Resolved]
  - Affect lability [Recovered/Resolved]
  - Drug interaction [Recovered/Resolved]
